FAERS Safety Report 17017388 (Version 1)
Quarter: 2019Q4

REPORT INFORMATION
  Report Type: Report from Study
  Country: TR (occurrence: TR)
  Receive Date: 20191111
  Receipt Date: 20191111
  Transmission Date: 20200122
  Serious: Yes (Death, Disabling, Other)
  Sender: FDA-Public Use
  Company Number: NVSC2019TR002888

PATIENT
  Age: 70 Year
  Sex: Female
  Weight: 77 kg

DRUGS (2)
  1. MIDOSTAURIN [Suspect]
     Active Substance: MIDOSTAURIN
     Dosage: 50 MG, BID
     Route: 048
     Dates: start: 20190927
  2. MIDOSTAURIN [Suspect]
     Active Substance: MIDOSTAURIN
     Indication: ACUTE MYELOID LEUKAEMIA
     Dosage: 100 MG
     Route: 048
     Dates: start: 20190910, end: 20190915

REACTIONS (6)
  - Lung infiltration [Recovered/Resolved]
  - Pyrexia [Recovered/Resolved]
  - Oxygen saturation decreased [Unknown]
  - Opportunistic infection [Recovered/Resolved]
  - Death [Fatal]
  - Pneumonitis [Recovered/Resolved]

NARRATIVE: CASE EVENT DATE: 20190915
